FAERS Safety Report 4581020-3 (Version None)
Quarter: 2005Q1

REPORT INFORMATION
  Report Type: 
  Country: None (occurrence: None)
  Receive Date: 20050214
  Receipt Date: 20040719
  Transmission Date: 20050727
  Serious: Yes (Hospitalization, Other)
  Sender: FDA-Public Use
  Company Number: US-GLAXOSMITHKLINE-A0518831A

PATIENT
  Age: 30 Year
  Sex: Male

DRUGS (3)
  1. LAMICTAL [Suspect]
     Indication: EPILEPSY
     Dosage: 500MG TWICE PER DAY
     Route: 048
     Dates: start: 20040101, end: 20040701
  2. DILANTIN [Concomitant]
  3. PRIMIDONE [Concomitant]

REACTIONS (2)
  - PRURITUS [None]
  - RASH [None]
